FAERS Safety Report 15770166 (Version 1)
Quarter: 2018Q4

REPORT INFORMATION
  Report Type: Spontaneous
  Country: US (occurrence: US)
  Receive Date: 20181228
  Receipt Date: 20181228
  Transmission Date: 20190205
  Serious: No
  Sender: FDA-Public Use
  Company Number: US-PFIZER INC-2018524328

PATIENT
  Age: 36 Year
  Sex: Female
  Weight: 104.3 kg

DRUGS (7)
  1. FLEXERIL [CEFIXIME] [Concomitant]
     Dosage: 5 MG, 1X/DAY (AT NIGHT)
  2. FLEXERIL [CEFIXIME] [Concomitant]
     Indication: MUSCLE RELAXANT THERAPY
     Dosage: UNK
     Dates: start: 2002
  3. FLEXERIL [CEFIXIME] [Concomitant]
     Indication: FATIGUE
     Dosage: 10 MG, UNK
  4. CYMBALTA [Concomitant]
     Active Substance: DULOXETINE HYDROCHLORIDE
     Indication: DEPRESSION
     Dosage: UNK
     Dates: start: 2015
  5. LYRICA [Suspect]
     Active Substance: PREGABALIN
     Indication: FIBROMYALGIA
     Dosage: UNK
  6. LYRICA [Suspect]
     Active Substance: PREGABALIN
     Dosage: 100 MG, 4X/DAY
  7. LYRICA [Suspect]
     Active Substance: PREGABALIN
     Dosage: 150 MG, 3X/DAY
     Route: 048
     Dates: start: 201806

REACTIONS (3)
  - Pain [Unknown]
  - Insomnia [Unknown]
  - Platelet count increased [Unknown]

NARRATIVE: CASE EVENT DATE: 20181217
